FAERS Safety Report 7184191-8 (Version None)
Quarter: 2010Q4

REPORT INFORMATION
  Report Type: 
  Country: None (occurrence: None)
  Receive Date: 20101222
  Receipt Date: 20101014
  Transmission Date: 20110411
  Serious: No
  Sender: FDA-Public Use
  Company Number: US-BRISTOL-MYERS SQUIBB COMPANY-15326226

PATIENT
  Sex: Female

DRUGS (1)
  1. QUESTRAN LIGHT [Suspect]
     Dosage: DISSOLVABLE
     Route: 048

REACTIONS (1)
  - MEDICATION RESIDUE [None]
